FAERS Safety Report 8532913-3 (Version None)
Quarter: 2012Q3

REPORT INFORMATION
  Report Type: 
  Country: None (occurrence: None)
  Receive Date: 20120724
  Receipt Date: 20120717
  Transmission Date: 20120928
  Serious: Yes (Hospitalization)
  Sender: FDA-Public Use
  Company Number: FR-ASTELLAS-2012EU005189

PATIENT
  Age: 49 Year
  Sex: Male

DRUGS (13)
  1. PROGRAF [Interacting]
     Dosage: 1 MG, BID
     Route: 065
  2. BACTRIM [Concomitant]
     Dosage: 2 DF, WEEKLY
     Route: 065
  3. PROGRAF [Suspect]
     Dosage: 6 MG, BID
     Route: 065
     Dates: start: 20111126
  4. PROGRAF [Interacting]
     Dosage: 0.5 MG, BID
     Route: 065
     Dates: start: 20111208
  5. PROGRAF [Interacting]
     Dosage: 4 MG, BID
     Route: 065
     Dates: start: 20111130, end: 20111201
  6. CELLCEPT [Concomitant]
     Dosage: 1 G, BID
     Route: 065
  7. NEXIUM [Concomitant]
     Dosage: 40 MG, UNKNOWN/D
     Route: 065
  8. PROGRAF [Interacting]
     Dosage: 1 MG, BID
     Route: 065
     Dates: start: 20111205
  9. FLUCONAZOLE [Interacting]
     Dosage: 400 MG, UNKNOWN/D
     Route: 065
     Dates: start: 20111125, end: 20111215
  10. PREDNISOLONE [Concomitant]
     Dosage: 20 MG, UNKNOWN/D
     Route: 065
  11. PROGRAF [Interacting]
     Dosage: 2 MG, UID/QD
     Route: 065
     Dates: start: 20111203
  12. PROGRAF [Interacting]
     Dosage: 2 MG, BID
     Route: 065
     Dates: start: 20111204
  13. FLUCONAZOLE [Interacting]
     Dosage: 200 MG, BID
     Route: 065
     Dates: start: 20111206

REACTIONS (2)
  - OVERDOSE [None]
  - RENAL FAILURE ACUTE [None]
